FAERS Safety Report 4280024-8 (Version None)
Quarter: 2004Q1

REPORT INFORMATION
  Report Type: 
  Country: None (occurrence: None)
  Receive Date: 20040126
  Receipt Date: 20040115
  Transmission Date: 20041129
  Serious: Yes (Life-Threatening)
  Sender: FDA-Public Use
  Company Number: 200410416GDDC

PATIENT
  Age: 82 Year
  Sex: Female

DRUGS (5)
  1. INDAPAMIDE [Suspect]
     Dosage: PO
     Route: 048
     Dates: end: 20031116
  2. BROMAZEPAM (LEXOMIL) [Suspect]
     Dosage: 3 MG/DAY PO
     Route: 048
     Dates: end: 20031118
  3. AUGMENTIN '125' [Suspect]
     Indication: LUNG INFECTION
     Dosage: 2 G/DAY PO
     Route: 048
     Dates: start: 20031114, end: 20031117
  4. CIPROFIBRATE (LIPANOR) [Concomitant]
  5. CLOMIPRAMINE HCL [Concomitant]

REACTIONS (5)
  - ANTIDEPRESSANT DRUG LEVEL INCREASED [None]
  - CONFUSIONAL STATE [None]
  - DRUG INTERACTION [None]
  - RENAL FAILURE ACUTE [None]
  - RESPIRATORY FAILURE [None]
